FAERS Safety Report 9332204 (Version 1)
Quarter: 2013Q2

REPORT INFORMATION
  Report Type: Spontaneous
  Country: US (occurrence: US)
  Receive Date: 20130606
  Receipt Date: 20130606
  Transmission Date: 20140414
  Serious: No
  Sender: FDA-Public Use
  Company Number: US-BIOGENIDEC-2013BI049063

PATIENT
  Sex: Female

DRUGS (5)
  1. AVONEX [Suspect]
     Indication: MULTIPLE SCLEROSIS
     Route: 030
  2. AVONEX [Suspect]
     Indication: MULTIPLE SCLEROSIS
     Route: 030
  3. LYRICA [Concomitant]
  4. CARBAMAZEPINE [Concomitant]
  5. TOPIRAMATE [Concomitant]

REACTIONS (4)
  - Trigeminal neuralgia [Unknown]
  - Memory impairment [Not Recovered/Not Resolved]
  - Phobia [Unknown]
  - Confusional state [Unknown]
